FAERS Safety Report 7249858-1 (Version None)
Quarter: 2011Q1

REPORT INFORMATION
  Report Type: 
  Country: None (occurrence: None)
  Receive Date: 20110128
  Receipt Date: 20100614
  Transmission Date: 20110831
  Serious: No
  Sender: FDA-Public Use
  Company Number: A0866609A

PATIENT
  Age: 49 Year
  Sex: Female
  Weight: 68.2 kg

DRUGS (8)
  1. MELOXICAM [Concomitant]
     Dosage: 50MG PER DAY
  2. ESTRADIOL [Concomitant]
     Dosage: 1.5MG PER DAY
     Dates: start: 20090101
  3. ASPIRIN [Concomitant]
     Dosage: 81MG PER DAY
  4. METHADONE [Concomitant]
     Indication: PAIN MANAGEMENT
     Dosage: 5MG FOUR TIMES PER DAY
     Dates: start: 20040101
  5. BUPROPION [Suspect]
     Indication: DEPRESSION
     Dosage: 150MG TWICE PER DAY
     Route: 065
  6. NORTRIPTYLINE [Concomitant]
     Dosage: 10MG PER DAY
  7. CYCLOBENZAPRINE [Concomitant]
     Dosage: 10MG TWICE PER DAY
  8. GABAPENTIN [Concomitant]
     Dosage: 300MG PER DAY

REACTIONS (4)
  - FATIGUE [None]
  - TREMOR [None]
  - NICOTINE DEPENDENCE [None]
  - INSOMNIA [None]
